FAERS Safety Report 12806087 (Version 2)
Quarter: 2016Q4

REPORT INFORMATION
  Report Type: Spontaneous
  Country: JP (occurrence: JP)
  Receive Date: 20161004
  Receipt Date: 20161014
  Transmission Date: 20170207
  Serious: Yes (Other)
  Sender: FDA-Public Use
  Company Number: JP-VIIV HEALTHCARE LIMITED-JP2016JPN142274

PATIENT
  Age: 69 Year
  Sex: Male

DRUGS (3)
  1. MODIODAL [Concomitant]
     Active Substance: MODAFINIL
     Dosage: UNK
  2. TENOZET [Suspect]
     Active Substance: TENOFOVIR DISOPROXIL FUMARATE
     Dosage: UNK
     Route: 048
  3. ZEFIX [Suspect]
     Active Substance: LAMIVUDINE
     Route: 048

REACTIONS (1)
  - Narcolepsy [Unknown]
